FAERS Safety Report 16561405 (Version 4)
Quarter: 2019Q3

REPORT INFORMATION
  Report Type: Spontaneous
  Country: JP (occurrence: JP)
  Receive Date: 20190711
  Receipt Date: 20190725
  Transmission Date: 20191004
  Serious: Yes (Other)
  Sender: FDA-Public Use
  Company Number: JP-PFIZER INC-2019296423

PATIENT
  Age: 72 Year
  Sex: Female

DRUGS (2)
  1. GEMCITABINE HYDROCHLORIDE. [Suspect]
     Active Substance: GEMCITABINE HYDROCHLORIDE
     Indication: PANCREATIC CARCINOMA
     Dosage: UNK, CYCLIC (THE INITIAL DOSE WAS SET AT 85%, 4 COURSES OF CHEMOTHERAPY)
  2. PACLITAXEL. [Suspect]
     Active Substance: PACLITAXEL
     Indication: PANCREATIC CARCINOMA
     Dosage: UNK, CYCLIC (INITIAL DOSE WAS SET AT 85%, 4 COURSES OF CHEMOTHERAPY)

REACTIONS (3)
  - Small intestinal haemorrhage [Unknown]
  - Erosive duodenitis [Unknown]
  - Bone marrow failure [Unknown]
